FAERS Safety Report 6357078-8 (Version None)
Quarter: 2009Q3

REPORT INFORMATION
  Report Type: 
  Country: None (occurrence: None)
  Receive Date: 20090910
  Receipt Date: 20090827
  Transmission Date: 20100115
  Serious: Yes (Hospitalization, Other)
  Sender: FDA-Public Use
  Company Number: 2009S1006966

PATIENT
  Age: 83 Year
  Sex: Female

DRUGS (3)
  1. PHOSPHOSODA FLAVOR NOT SPECIFIED [Suspect]
     Indication: COLONOSCOPY
     Dosage: 90 ML; TOTAL;PO
     Route: 048
     Dates: start: 20071115, end: 20071115
  2. NEXIUM [Concomitant]
  3. MULTI-VITAMINS [Concomitant]

REACTIONS (5)
  - ANAEMIA [None]
  - HYPERTENSION [None]
  - HYPERTHYROIDISM [None]
  - NAUSEA [None]
  - RENAL FAILURE ACUTE [None]
